FAERS Safety Report 20932744 (Version 1)
Quarter: 2022Q2

REPORT INFORMATION
  Report Type: Spontaneous
  Country: US (occurrence: US)
  Receive Date: 20220608
  Receipt Date: 20220608
  Transmission Date: 20220721
  Serious: No
  Sender: FDA-Public Use
  Company Number: US-PFIZER INC-202200804956

PATIENT
  Age: 73 Year
  Sex: Female

DRUGS (34)
  1. FLAGYL [Suspect]
     Active Substance: METRONIDAZOLE\METRONIDAZOLE HYDROCHLORIDE
     Dosage: 250 MG
     Dates: start: 20101109
  2. XANAX [Suspect]
     Active Substance: ALPRAZOLAM
     Dosage: 1 MG
     Dates: start: 20101109
  3. AZITHROMYCIN [Suspect]
     Active Substance: AZITHROMYCIN
     Dosage: 250 MG
     Dates: start: 20101109
  4. DOXYCYCLINE HYCLATE [Suspect]
     Active Substance: DOXYCYCLINE HYCLATE
     Dosage: UNK
     Dates: start: 20151218
  5. VERAPAMIL HCL [Suspect]
     Active Substance: VERAPAMIL HYDROCHLORIDE
     Dosage: UNK
     Dates: start: 20101109
  6. CYCLOBENZAPRINE [Suspect]
     Active Substance: CYCLOBENZAPRINE
     Dosage: UNK
     Dates: start: 20170123
  7. RIFAXIMIN [Suspect]
     Active Substance: RIFAXIMIN
     Dosage: UNK
     Dates: start: 20120821
  8. KEFLEX [Suspect]
     Active Substance: CEPHALEXIN
     Dosage: 250 MG
     Dates: start: 20101109
  9. CLARITHROMYCIN [Suspect]
     Active Substance: CLARITHROMYCIN
     Dosage: 100 MG
     Dates: start: 20101109
  10. BENZETHONIUM CHLORIDE [Suspect]
     Active Substance: BENZETHONIUM CHLORIDE
     Dosage: UNK
     Dates: start: 20101109
  11. LOPRESSOR [Suspect]
     Active Substance: METOPROLOL TARTRATE
     Dosage: 50 MG
     Dates: start: 20101109
  12. METOPROLOL TARTRATE [Suspect]
     Active Substance: METOPROLOL TARTRATE
     Dosage: 50 MG
     Dates: start: 20211109
  13. ATENOLOL [Suspect]
     Active Substance: ATENOLOL
     Dosage: 50 MG
     Dates: start: 20101109
  14. SECTRAL [Suspect]
     Active Substance: ACEBUTOLOL HYDROCHLORIDE
     Dosage: 200 MG
     Dates: start: 20101109
  15. PEPTO-BISMOL [Suspect]
     Active Substance: BISMUTH SUBSALICYLATE
     Dosage: 262 MG
     Dates: start: 20101109
  16. PREVACID [Suspect]
     Active Substance: LANSOPRAZOLE
     Dosage: 30 MG
     Dates: start: 20101109
  17. NEXIUM [Suspect]
     Active Substance: ESOMEPRAZOLE MAGNESIUM
     Dosage: 20 MG
     Dates: start: 20101109
  18. ZANTAC [Suspect]
     Active Substance: RANITIDINE HYDROCHLORIDE
     Dosage: 150 MG
     Dates: start: 20101109
  19. VALIUM [Suspect]
     Active Substance: DIAZEPAM
     Dosage: 10 MG
     Dates: start: 20101109
  20. CELECOXIB [Suspect]
     Active Substance: CELECOXIB
     Dosage: 10 MG
     Dates: start: 20101109
  21. PREDNISONE [Suspect]
     Active Substance: PREDNISONE
     Dosage: 1 MG
     Dates: start: 20101109
  22. GUAIFENESIN [Suspect]
     Active Substance: GUAIFENESIN
     Dosage: 400 MG
     Dates: start: 20101109
  23. POLOCAINE [Suspect]
     Active Substance: MEPIVACAINE HYDROCHLORIDE
     Dosage: UNK
     Dates: start: 20101109
  24. ASPIRIN [Suspect]
     Active Substance: ASPIRIN
     Dosage: 325 MG
     Dates: start: 20101109
  25. DARVON-N [Suspect]
     Active Substance: PROPOXYPHENE NAPSYLATE
     Dosage: 100 MG
     Dates: start: 20101109
  26. CODEINE [Suspect]
     Active Substance: CODEINE
     Dosage: 15 MG
     Dates: start: 20101109
  27. OFLOXACIN [Suspect]
     Active Substance: OFLOXACIN
     Dosage: 200 MG
     Dates: start: 20101109
  28. PINDOLOL [Suspect]
     Active Substance: PINDOLOL
     Dosage: 10 MG
     Dates: start: 20101109
  29. BENADRYL [Suspect]
     Active Substance: DIPHENHYDRAMINE HYDROCHLORIDE
     Dosage: 50 MG/ML
     Dates: start: 20100604
  30. ERYTHROMYCIN [Suspect]
     Active Substance: ERYTHROMYCIN
     Dosage: 250 MG
     Dates: start: 20100604
  31. ADVIL [Suspect]
     Active Substance: IBUPROFEN
     Dosage: 200 MG
     Dates: start: 20100604
  32. TYLENOL [Suspect]
     Active Substance: ACETAMINOPHEN
     Dosage: 325 MG
     Dates: start: 20100604
  33. PRILOSEC [Suspect]
     Active Substance: OMEPRAZOLE MAGNESIUM
     Dosage: 10 MG
     Dates: start: 20100604
  34. CIPRO [Suspect]
     Active Substance: CIPROFLOXACIN HYDROCHLORIDE
     Dosage: 250 MG
     Dates: start: 20100604

REACTIONS (1)
  - Drug hypersensitivity [Unknown]
